FAERS Safety Report 17505432 (Version 3)
Quarter: 2021Q1

REPORT INFORMATION
  Report Type: Other
  Country: US (occurrence: US)
  Receive Date: 20200305
  Receipt Date: 20210114
  Transmission Date: 20210419
  Serious: Yes (Hospitalization, Other)
  Sender: FDA-Public Use
  Company Number: US-AMAG PHARMACEUTICALS, INC.-AMAG202000688

PATIENT
  Age: 37 Year
  Sex: Female
  Weight: 95.34 kg

DRUGS (3)
  1. PRENATAL VITAMIN [Concomitant]
     Active Substance: VITAMINS
     Indication: VITAMIN SUPPLEMENTATION
     Dosage: 1 TAB QD
     Dates: start: 20191023
  2. NIFEDIPINE. [Concomitant]
     Active Substance: NIFEDIPINE
     Indication: HYPERTENSION
     Route: 048
  3. MAKENA [Suspect]
     Active Substance: HYDROXYPROGESTERONE CAPROATE
     Indication: PREMATURE DELIVERY
     Route: 058
     Dates: start: 20191211, end: 20200205

REACTIONS (9)
  - Oligohydramnios [Recovered/Resolved]
  - Bronchitis [Unknown]
  - Preterm premature rupture of membranes [Recovered/Resolved]
  - Premature labour [Recovered/Resolved]
  - Urinary tract infection [Unknown]
  - Streptococcus test positive [Unknown]
  - Premature separation of placenta [Recovered/Resolved]
  - Amniotic cavity infection [Recovered/Resolved]
  - Premature delivery [Recovered/Resolved]

NARRATIVE: CASE EVENT DATE: 2020
